FAERS Safety Report 15372422 (Version 26)
Quarter: 2021Q4

REPORT INFORMATION
  Report Type: Report from Study
  Country: CA (occurrence: CA)
  Receive Date: 20180911
  Receipt Date: 20211125
  Transmission Date: 20220303
  Serious: Yes (Hospitalization, Other)
  Sender: FDA-Public Use
  Company Number: PHHY2017CA039769

PATIENT
  Age: 71 Year
  Sex: Male

DRUGS (9)
  1. SANDOSTATIN LAR DEPOT [Suspect]
     Active Substance: OCTREOTIDE ACETATE
     Indication: Pancreatic neuroendocrine tumour
     Dosage: 30 MG, QMO (EVERY 4 WEEKS)
     Route: 030
     Dates: start: 20081102
  2. SANDOSTATIN LAR DEPOT [Suspect]
     Active Substance: OCTREOTIDE ACETATE
     Dosage: 30 MG, QMO (EVERY 4 WEEKS)
     Route: 030
     Dates: start: 20100322
  3. SANDOSTATIN LAR DEPOT [Suspect]
     Active Substance: OCTREOTIDE ACETATE
     Dosage: 30 MG, QMO (EVERY 4 WEEKS)
     Route: 030
     Dates: start: 20101022
  4. AFINITOR [Suspect]
     Active Substance: EVEROLIMUS
     Indication: Pancreatic neuroendocrine tumour
     Dosage: 10 MG, QD
     Route: 048
     Dates: start: 201602, end: 2016
  5. AFINITOR [Suspect]
     Active Substance: EVEROLIMUS
     Dosage: 5 MG, QD
     Route: 048
     Dates: start: 2016
  6. AFINITOR [Suspect]
     Active Substance: EVEROLIMUS
     Dosage: 10 MG, QD
     Route: 048
     Dates: start: 2016, end: 2016
  7. METFORMIN [Suspect]
     Active Substance: METFORMIN HYDROCHLORIDE
     Indication: Product used for unknown indication
     Dosage: 850 MG, BID
     Route: 065
  8. BISOPROLOL [Suspect]
     Active Substance: BISOPROLOL
     Indication: Product used for unknown indication
     Dosage: UNK
     Route: 065
  9. CANNABIS SATIVA SUBSP. INDICA TOP [Suspect]
     Active Substance: CANNABIS SATIVA SUBSP. INDICA TOP
     Indication: Product used for unknown indication
     Dosage: UNK
     Route: 065

REACTIONS (40)
  - Malaise [Unknown]
  - Discomfort [Unknown]
  - Nausea [Unknown]
  - Tachycardia [Unknown]
  - Diabetes mellitus inadequate control [Recovering/Resolving]
  - Cholangitis [Unknown]
  - Hyperglycaemia [Recovering/Resolving]
  - Jaundice [Unknown]
  - Pyrexia [Unknown]
  - Blood glucose fluctuation [Unknown]
  - Pancreatic neuroendocrine tumour [Unknown]
  - Malignant neoplasm progression [Unknown]
  - Metastases to gastrointestinal tract [Unknown]
  - Metastases to liver [Unknown]
  - Epistaxis [Recovered/Resolved]
  - Joint swelling [Unknown]
  - Mouth ulceration [Recovered/Resolved]
  - Onychoclasis [Unknown]
  - Blood pressure fluctuation [Unknown]
  - Blood pressure systolic increased [Unknown]
  - Rhinorrhoea [Unknown]
  - Oropharyngeal pain [Recovered/Resolved]
  - Arthralgia [Recovered/Resolved]
  - Arthralgia [Unknown]
  - Oedema peripheral [Not Recovered/Not Resolved]
  - Bursitis [Unknown]
  - Bowel movement irregularity [Unknown]
  - Abdominal pain [Recovered/Resolved]
  - Abdominal pain [Unknown]
  - Constipation [Recovered/Resolved]
  - Hypoglycaemia [Recovering/Resolving]
  - Headache [Unknown]
  - Asthenia [Unknown]
  - Dizziness [Unknown]
  - Gait disturbance [Unknown]
  - Pain in extremity [Unknown]
  - Fatigue [Unknown]
  - Hypoglycaemia [Unknown]
  - Blood glucose abnormal [Unknown]
  - Injection site pain [Unknown]

NARRATIVE: CASE EVENT DATE: 20180124
